FAERS Safety Report 9309612 (Version 1)
Quarter: 2013Q2

REPORT INFORMATION
  Report Type: Spontaneous
  Country: US (occurrence: US)
  Receive Date: 20130525
  Receipt Date: 20130525
  Transmission Date: 20140414
  Serious: No
  Sender: FDA-Public Use
  Company Number: US-BRISTOL-MYERS SQUIBB COMPANY-17483306

PATIENT
  Age: 60 Year
  Sex: Male
  Weight: 82.09 kg

DRUGS (5)
  1. BYDUREON [Suspect]
     Indication: TYPE 2 DIABETES MELLITUS
     Dosage: EXENATIDE LONG ACTING RELEASE
     Route: 058
     Dates: start: 20130111
  2. GLIPIZIDE [Concomitant]
     Indication: TYPE 2 DIABETES MELLITUS
     Route: 048
  3. METFORMIN [Concomitant]
     Indication: TYPE 2 DIABETES MELLITUS
     Route: 048
  4. ACTOS [Concomitant]
     Indication: TYPE 2 DIABETES MELLITUS
     Route: 048
  5. JANUVIA [Concomitant]
     Indication: TYPE 2 DIABETES MELLITUS
     Route: 048

REACTIONS (5)
  - Injection site haemorrhage [Recovered/Resolved]
  - Injection site nodule [Recovering/Resolving]
  - Injection site irritation [Recovering/Resolving]
  - Injection site pruritus [Recovering/Resolving]
  - Nausea [Not Recovered/Not Resolved]
